FAERS Safety Report 5234766-8 (Version None)
Quarter: 2007Q1

REPORT INFORMATION
  Report Type: 
  Country: None (occurrence: None)
  Receive Date: 20070209
  Receipt Date: 20070129
  Transmission Date: 20070707
  Serious: Yes (Hospitalization, Other)
  Sender: FDA-Public Use
  Company Number: US-PFIZER INC-2006124025

PATIENT
  Sex: Male
  Weight: 81.6 kg

DRUGS (7)
  1. CELEBREX [Suspect]
     Indication: ARTHRITIS
     Dates: start: 20000501, end: 20040325
  2. CELEBREX [Suspect]
     Dates: start: 20040316, end: 20050222
  3. ADVIL [Concomitant]
  4. ASPIRIN [Concomitant]
  5. MORPHINE [Concomitant]
  6. OXYCONTIN [Concomitant]
  7. PERCOCET [Concomitant]

REACTIONS (4)
  - CARDIOVASCULAR DISORDER [None]
  - CEREBROVASCULAR DISORDER [None]
  - INJURY [None]
  - MYOCARDIAL INFARCTION [None]
